FAERS Safety Report 6151005-4 (Version None)
Quarter: 2009Q2

REPORT INFORMATION
  Report Type: 
  Country: None (occurrence: None)
  Receive Date: 20090410
  Receipt Date: 20090324
  Transmission Date: 20091009
  Serious: No
  Sender: FDA-Public Use
  Company Number: A0769328A

PATIENT
  Age: 59 Year
  Sex: Female
  Weight: 88.2 kg

DRUGS (12)
  1. TYKERB [Suspect]
     Indication: BREAST CANCER
     Dosage: 1250MG PER DAY
     Route: 048
     Dates: start: 20090210
  2. XELODA [Suspect]
     Indication: BREAST CANCER
  3. KYTRIL [Concomitant]
  4. CHEMOTHERAPY [Concomitant]
     Route: 042
  5. LIPITOR [Concomitant]
  6. PRILOSEC [Concomitant]
  7. OXYCONTIN [Concomitant]
  8. LYRICA [Concomitant]
  9. TRICOR [Concomitant]
  10. INSULIN [Concomitant]
  11. NOVOLOG [Concomitant]
  12. AREDIA [Concomitant]
     Route: 042

REACTIONS (4)
  - DRY SKIN [None]
  - FATIGUE [None]
  - SKIN EXFOLIATION [None]
  - VOMITING [None]
